FAERS Safety Report 6007838-8 (Version None)
Quarter: 2008Q4

REPORT INFORMATION
  Report Type: 
  Country: None (occurrence: None)
  Receive Date: 20081217
  Receipt Date: 20080714
  Transmission Date: 20090506
  Serious: No
  Sender: FDA-Public Use
  Company Number: US-ASTRAZENECA-2008UW13256

PATIENT
  Age: 77 Year
  Sex: Female
  Weight: 67.1 kg

DRUGS (6)
  1. CRESTOR [Suspect]
     Indication: BLOOD CHOLESTEROL INCREASED
     Route: 048
  2. EXFORGE [Concomitant]
  3. DIOVAN [Concomitant]
  4. ASABUTAL [Concomitant]
  5. FOSAMAX [Concomitant]
  6. EVISTA [Concomitant]

REACTIONS (1)
  - MUSCLE SPASMS [None]
